FAERS Safety Report 17296990 (Version 1)
Quarter: 2020Q1

REPORT INFORMATION
  Report Type: Spontaneous
  Country: US (occurrence: US)
  Receive Date: 20200122
  Receipt Date: 20200122
  Transmission Date: 20200409
  Serious: No
  Sender: FDA-Public Use
  Company Number: US-BIO PRODUCTS LABORATORY LTD-2079277

PATIENT
  Sex: Female

DRUGS (4)
  1. CD34+ CELL TRANSFUSION [Concomitant]
  2. SIROLIMUS. [Concomitant]
     Active Substance: SIROLIMUS
  3. RITUXIMAB. [Concomitant]
     Active Substance: RITUXIMAB
  4. GENERIC IVIG [Suspect]
     Active Substance: HUMAN IMMUNOGLOBULIN G
     Indication: APLASIA
     Route: 042

REACTIONS (2)
  - Product use in unapproved indication [Not Recovered/Not Resolved]
  - Drug ineffective for unapproved indication [Not Recovered/Not Resolved]
